FAERS Safety Report 25572513 (Version 5)
Quarter: 2025Q3

REPORT INFORMATION
  Report Type: Spontaneous
  Country: US (occurrence: US)
  Receive Date: 20250717
  Receipt Date: 20250919
  Transmission Date: 20251020
  Serious: No
  Sender: PFIZER
  Company Number: US-PFIZER INC-202500142729

PATIENT
  Age: 16 Year
  Sex: Male

DRUGS (2)
  1. GENOTROPIN [Suspect]
     Active Substance: SOMATROPIN
  2. GENOTROPIN [Suspect]
     Active Substance: SOMATROPIN
     Dates: start: 202311

REACTIONS (2)
  - Device delivery system issue [Unknown]
  - Drug dose omission by device [Unknown]
